FAERS Safety Report 8531633-9 (Version None)
Quarter: 2012Q3

REPORT INFORMATION
  Report Type: 
  Country: None (occurrence: None)
  Receive Date: 20120723
  Receipt Date: 20120718
  Transmission Date: 20120928
  Serious: Yes (Hospitalization, Other)
  Sender: FDA-Public Use
  Company Number: US-BRISTOL-MYERS SQUIBB COMPANY-16656217

PATIENT
  Age: 88 Year
  Sex: Male
  Weight: 61 kg

DRUGS (6)
  1. LIPITOR [Concomitant]
  2. LOPRESSOR [Concomitant]
  3. PLAVIX [Concomitant]
  4. ASPIRIN [Concomitant]
  5. PREDNISONE [Concomitant]
  6. AVAPRO [Suspect]
     Indication: HYPERTENSION
     Dates: end: 20120201

REACTIONS (5)
  - FALL [None]
  - HAEMORRHAGE [None]
  - MYOCARDIAL INFARCTION [None]
  - PULMONARY THROMBOSIS [None]
  - VOMITING [None]
